FAERS Safety Report 17807887 (Version 1)
Quarter: 2020Q2

REPORT INFORMATION
  Report Type: Spontaneous
  Country: CA (occurrence: CA)
  Receive Date: 20200520
  Receipt Date: 20200520
  Transmission Date: 20200714
  Serious: Yes (Other)
  Sender: FDA-Public Use
  Company Number: CA-PFIZER INC-2020199350

PATIENT
  Age: 74 Year
  Sex: Male

DRUGS (14)
  1. FLOVENT [Suspect]
     Active Substance: FLUTICASONE PROPIONATE
     Dosage: UNK
     Route: 065
  2. ADVAIR HFA [Suspect]
     Active Substance: FLUTICASONE PROPIONATE\SALMETEROL XINAFOATE
     Dosage: UNK
     Route: 065
  3. TERBUTALINE SULFATE. [Suspect]
     Active Substance: TERBUTALINE SULFATE
     Dosage: UNK
     Route: 065
  4. VITAMIN B12 [Concomitant]
     Active Substance: CYANOCOBALAMIN
     Dosage: UNK
     Route: 065
  5. CROMOGLICIC ACID [Concomitant]
     Active Substance: CROMOLYN
     Dosage: UNK
     Route: 055
  6. BECLOMETHASONE [Suspect]
     Active Substance: BECLOMETHASONE
     Dosage: UNK
     Route: 055
  7. SALBUTAMOL SULFATE [Suspect]
     Active Substance: ALBUTEROL SULFATE
     Dosage: 4 DF, 1X/DAY
     Route: 065
  8. SINGULAIR [Suspect]
     Active Substance: MONTELUKAST SODIUM
     Dosage: UNK
     Route: 065
  9. EPINEPHRINE. [Suspect]
     Active Substance: EPINEPHRINE
     Dosage: UNK
     Route: 065
  10. SPIRIVA [Suspect]
     Active Substance: TIOTROPIUM BROMIDE MONOHYDRATE
     Dosage: UNK, 1X/DAY
     Route: 065
  11. PANTOLOC [Concomitant]
     Active Substance: PANTOPRAZOLE SODIUM
     Dosage: UNK, 1X/DAY
     Route: 065
  12. BREO ELLIPTA [Suspect]
     Active Substance: FLUTICASONE FUROATE\VILANTEROL TRIFENATATE
     Dosage: UNK (INHALATION)
     Route: 065
  13. TILADE [Suspect]
     Active Substance: NEDOCROMIL SODIUM
     Dosage: UNK
     Route: 065
  14. ROSUVASTATIN CALCIUM. [Concomitant]
     Active Substance: ROSUVASTATIN CALCIUM
     Dosage: UNK
     Route: 065

REACTIONS (23)
  - Hypoaesthesia [Unknown]
  - Iron deficiency anaemia [Unknown]
  - Obstructive airways disorder [Unknown]
  - Asthma [Unknown]
  - Chest discomfort [Unknown]
  - Gastrointestinal haemorrhage [Unknown]
  - Tachycardia [Unknown]
  - Therapeutic product effect incomplete [Unknown]
  - Dysphonia [Unknown]
  - Heart rate increased [Unknown]
  - Middle insomnia [Unknown]
  - Nasal disorder [Unknown]
  - Nasal inflammation [Unknown]
  - Skin lesion [Unknown]
  - Ventricular extrasystoles [Unknown]
  - Wheezing [Unknown]
  - Meralgia paraesthetica [Unknown]
  - Rhinitis [Unknown]
  - Melaena [Unknown]
  - Cough [Unknown]
  - Blood count abnormal [Unknown]
  - Dermatitis bullous [Unknown]
  - Dyspnoea [Unknown]
